FAERS Safety Report 7658315-X (Version None)
Quarter: 2011Q3

REPORT INFORMATION
  Report Type: 
  Country: None (occurrence: None)
  Receive Date: 20110805
  Receipt Date: 20110803
  Transmission Date: 20111222
  Serious: No
  Sender: FDA-Public Use
  Company Number: US-PFIZER INC-2011148055

PATIENT
  Age: 85 Year
  Sex: Female

DRUGS (1)
  1. ALPRAZOLAM [Suspect]
     Dosage: 2 MG, UNK

REACTIONS (2)
  - MALAISE [None]
  - OROPHARYNGEAL PAIN [None]
